FAERS Safety Report 9681098 (Version 1)
Quarter: 2013Q4

REPORT INFORMATION
  Report Type: Spontaneous
  Country: US (occurrence: None)
  Receive Date: 20131108
  Receipt Date: 20131108
  Transmission Date: 20140711
  Serious: Yes (Disabling)
  Sender: FDA-Public Use
  Company Number: None

PATIENT
  Age: 45 Year
  Sex: Female
  Weight: 117.94 kg

DRUGS (1)
  1. ALBUTEROL 0.83% NEPHERON PHARMACITICALS [Suspect]
     Indication: ASTHMA
     Dosage: 1 AMPULE AS NEEDED INHALATION
     Route: 055
     Dates: start: 20131001, end: 20131031

REACTIONS (7)
  - Bronchospasm [None]
  - Blood pressure increased [None]
  - Productive cough [None]
  - Dyspnoea [None]
  - Stress [None]
  - Headache [None]
  - Condition aggravated [None]
